FAERS Safety Report 17052892 (Version 1)
Quarter: 2019Q4

REPORT INFORMATION
  Report Type: Spontaneous
  Country: TH (occurrence: TH)
  Receive Date: 20191120
  Receipt Date: 20191120
  Transmission Date: 20200122
  Serious: Yes (Other)
  Sender: FDA-Public Use
  Company Number: TH-AMGEN-THASP2019190897

PATIENT
  Age: 52 Year
  Sex: Female

DRUGS (2)
  1. REPATHA [Suspect]
     Active Substance: EVOLOCUMAB
     Indication: TYPE IIA HYPERLIPIDAEMIA
     Dosage: 140 MG/DL, Q2WK
     Route: 065
     Dates: start: 20180606, end: 20190122
  2. REPATHA [Suspect]
     Active Substance: EVOLOCUMAB
     Dosage: 420 MILLIGRAM, QMO
     Route: 065
     Dates: start: 20190220

REACTIONS (1)
  - Acute coronary syndrome [Unknown]

NARRATIVE: CASE EVENT DATE: 20181219
